FAERS Safety Report 6360976-2 (Version None)
Quarter: 2009Q3

REPORT INFORMATION
  Report Type: 
  Country: None (occurrence: None)
  Receive Date: 20090915
  Receipt Date: 20090915
  Transmission Date: 20100115
  Serious: Yes (Other)
  Sender: FDA-Public Use
  Company Number: None

PATIENT
  Age: 30 Year
  Sex: Female
  Weight: 75.7507 kg

DRUGS (1)
  1. HUMIRA [Suspect]
     Indication: CROHN'S DISEASE
     Dosage: 40 MG / 0.8 ML EVERY OTHER WEEK SQ
     Route: 058
     Dates: start: 20090209, end: 20090501

REACTIONS (2)
  - ECZEMA [None]
  - SCAR [None]
